FAERS Safety Report 8558278-9 (Version None)
Quarter: 2012Q3

REPORT INFORMATION
  Report Type: 
  Country: None (occurrence: None)
  Receive Date: 20120801
  Receipt Date: 20120727
  Transmission Date: 20120928
  Serious: Yes (Death, Other)
  Sender: FDA-Public Use
  Company Number: CO-JNJFOC-20120713974

PATIENT
  Age: 63 Year
  Sex: Female

DRUGS (1)
  1. RISPERDAL CONSTA [Suspect]
     Indication: BIPOLAR DISORDER
     Route: 030
     Dates: start: 20100101

REACTIONS (5)
  - FALL [None]
  - HIP FRACTURE [None]
  - RENAL FAILURE [None]
  - CARDIAC ARREST [None]
  - RHEUMATOID ARTHRITIS [None]
